FAERS Safety Report 7791525-X (Version None)
Quarter: 2011Q4

REPORT INFORMATION
  Report Type: 
  Country: None (occurrence: None)
  Receive Date: 20111003
  Receipt Date: 20110921
  Transmission Date: 20120403
  Serious: Yes (Hospitalization)
  Sender: FDA-Public Use
  Company Number: US-US-EMD SERONO, INC.-7084786

PATIENT
  Sex: Female

DRUGS (5)
  1. REBIF [Suspect]
     Route: 058
  2. ADVAIR DISKUS 100/50 [Concomitant]
     Indication: ASTHMA
  3. REBIF [Suspect]
     Indication: PRODUCT USED FOR UNKNOWN INDICATION
     Dates: start: 20110601
  4. LAMICTAL [Concomitant]
     Indication: CONVULSION
  5. NEBULIZER TREATMENTS [Concomitant]
     Indication: ASTHMA

REACTIONS (10)
  - MUSCLE SPASMS [None]
  - FEELING COLD [None]
  - MUSCULOSKELETAL STIFFNESS [None]
  - INJECTION SITE SWELLING [None]
  - CHEST PAIN [None]
  - ARTHRALGIA [None]
  - CHILLS [None]
  - HYPERTENSION [None]
  - BLOOD CHOLESTEROL INCREASED [None]
  - INJECTION SITE ERYTHEMA [None]
